FAERS Safety Report 4349190-X (Version None)
Quarter: 2004Q2

REPORT INFORMATION
  Report Type: 
  Country: None (occurrence: None)
  Receive Date: 20040428
  Receipt Date: 20030304
  Transmission Date: 20050107
  Serious: Yes (Hospitalization, Other)
  Sender: FDA-Public Use
  Company Number: PHEH2003US02134

PATIENT
  Age: 72 Year
  Sex: Male
  Weight: 88 kg

DRUGS (6)
  1. CALCIUM [Concomitant]
  2. HERBAL EXTRACTS NOS [Concomitant]
  3. LORCET-HD [Concomitant]
  4. DIOVAN [Concomitant]
  5. PLAQUENIL [Concomitant]
  6. LAMISIL [Suspect]
     Route: 048
     Dates: start: 20011201, end: 20020101

REACTIONS (19)
  - BACK PAIN [None]
  - DERMATITIS EXFOLIATIVE [None]
  - DIARRHOEA [None]
  - DRUG HYPERSENSITIVITY [None]
  - DYSPNOEA [None]
  - GAIT DISTURBANCE [None]
  - HYPERSENSITIVITY [None]
  - INFREQUENT BOWEL MOVEMENTS [None]
  - INTERVERTEBRAL DISC OPERATION [None]
  - INTERVERTEBRAL DISC SPACE NARROWING [None]
  - JAUNDICE [None]
  - OEDEMA PERIPHERAL [None]
  - ORAL MUCOSAL BLISTERING [None]
  - PAIN IN EXTREMITY [None]
  - PRURITUS [None]
  - RASH ERYTHEMATOUS [None]
  - RASH PAPULAR [None]
  - SKIN LESION [None]
  - STEVENS-JOHNSON SYNDROME [None]
